FAERS Safety Report 14780081 (Version 3)
Quarter: 2018Q2

REPORT INFORMATION
  Report Type: Report from Study
  Country: CZ (occurrence: CZ)
  Receive Date: 20180419
  Receipt Date: 20180509
  Transmission Date: 20180711
  Serious: Yes (Other)
  Sender: FDA-Public Use
  Company Number: CZ-PFIZER INC-2018066576

PATIENT
  Age: 58 Year
  Sex: Male

DRUGS (31)
  1. QUAMATEL [Concomitant]
     Active Substance: FAMOTIDINE
     Dosage: UNK
     Route: 065
     Dates: start: 20141208, end: 20141208
  2. APAURIN [Concomitant]
     Active Substance: DIAZEPAM
     Dosage: UNK
     Dates: start: 20141124, end: 20141124
  3. APAURIN [Concomitant]
     Active Substance: DIAZEPAM
     Indication: PROPHYLAXIS
     Dosage: UNK
     Dates: start: 20141110, end: 20141110
  4. LEUCOVORIN. [Suspect]
     Active Substance: LEUCOVORIN
     Dosage: 800 MG, CYCLIC
     Route: 041
     Dates: start: 20141124, end: 20141124
  5. 5-FU [Suspect]
     Active Substance: FLUOROURACIL
     Indication: COLORECTAL CANCER METASTATIC
     Dosage: 800 MG, CYCLIC
     Route: 040
     Dates: start: 20141110, end: 20141110
  6. ATROPIN [Concomitant]
     Active Substance: ATROPINE
     Dosage: UNK
  7. KALII CHLORIDUM [Concomitant]
     Indication: PROPHYLAXIS
     Dosage: UNK
     Dates: start: 201407, end: 20141119
  8. KALII CHLORIDUM [Concomitant]
     Dosage: UNK
     Dates: start: 20141120, end: 20141120
  9. IRINOTECAN HCL [Suspect]
     Active Substance: IRINOTECAN HYDROCHLORIDE
     Dosage: 360 MG, CYCLIC
     Route: 041
     Dates: start: 20141124, end: 20141124
  10. AFLIBERCEPT [Suspect]
     Active Substance: AFLIBERCEPT
     Indication: COLORECTAL CANCER METASTATIC
     Dosage: 380 MG, CYCLIC
     Route: 041
     Dates: start: 20141110, end: 20141110
  11. ZOLSANA [Concomitant]
     Dosage: UNK
     Dates: start: 201403
  12. KALII CHLORIDUM [Concomitant]
     Dosage: UNK
  13. 5-FU [Suspect]
     Active Substance: FLUOROURACIL
     Dosage: 4800 MG, CYCLIC
     Route: 040
     Dates: start: 20141110, end: 20141110
  14. ATROPIN [Concomitant]
     Active Substance: ATROPINE
     Indication: PROPHYLAXIS
     Dosage: UNK
     Dates: start: 20141110, end: 20141110
  15. 5-FU [Suspect]
     Active Substance: FLUOROURACIL
     Dosage: 4800 MG, CYCLIC
     Route: 042
     Dates: start: 20141124, end: 20141124
  16. QUAMATEL [Concomitant]
     Active Substance: FAMOTIDINE
     Dosage: UNK
  17. ATROPIN [Concomitant]
     Active Substance: ATROPINE
     Dosage: UNK
     Dates: start: 20141208, end: 20141208
  18. ATROPIN [Concomitant]
     Active Substance: ATROPINE
     Dosage: UNK
  19. KALII CHLORIDUM [Concomitant]
     Dosage: UNK
  20. APAURIN [Concomitant]
     Active Substance: DIAZEPAM
     Dosage: UNK
  21. IRINOTECAN HCL [Suspect]
     Active Substance: IRINOTECAN HYDROCHLORIDE
     Indication: COLORECTAL CANCER METASTATIC
     Dosage: 360 MG, CYCLIC
     Route: 041
     Dates: start: 20141110, end: 20141110
  22. LEUCOVORIN. [Suspect]
     Active Substance: LEUCOVORIN
     Indication: COLORECTAL CANCER METASTATIC
     Dosage: 800 MG, CYCLIC
     Route: 041
     Dates: start: 20141110, end: 20141110
  23. AFLIBERCEPT [Suspect]
     Active Substance: AFLIBERCEPT
     Dosage: 360 MG, CYCLIC
     Route: 041
     Dates: start: 20141124, end: 20141124
  24. QUAMATEL [Concomitant]
     Active Substance: FAMOTIDINE
     Dosage: UNK
     Route: 065
     Dates: start: 20141124, end: 20141124
  25. QUAMATEL [Concomitant]
     Active Substance: FAMOTIDINE
     Dosage: UNK
  26. ATROPIN [Concomitant]
     Active Substance: ATROPINE
     Dosage: UNK
     Dates: start: 20141124, end: 20141124
  27. ATROPIN [Concomitant]
     Active Substance: ATROPINE
     Dosage: UNK
  28. 5-FU [Suspect]
     Active Substance: FLUOROURACIL
     Dosage: 800 MG, CYCLIC
     Route: 040
     Dates: start: 20141124, end: 20141124
  29. QUAMATEL [Concomitant]
     Active Substance: FAMOTIDINE
     Indication: PROPHYLAXIS
     Dosage: UNK
     Route: 065
     Dates: start: 20141110, end: 20141110
  30. QUAMATEL [Concomitant]
     Active Substance: FAMOTIDINE
     Dosage: UNK
  31. ATROPIN [Concomitant]
     Active Substance: ATROPINE
     Dosage: UNK

REACTIONS (3)
  - Hypertension [Recovered/Resolved]
  - Condition aggravated [Recovered/Resolved]
  - Neutropenia [Recovered/Resolved]

NARRATIVE: CASE EVENT DATE: 20141124
